FAERS Safety Report 4530683-7 (Version None)
Quarter: 2004Q4

REPORT INFORMATION
  Report Type: 
  Country: None (occurrence: None)
  Receive Date: 20041217
  Receipt Date: 20041110
  Transmission Date: 20050328
  Serious: Yes (Life-Threatening, Hospitalization)
  Sender: FDA-Public Use
  Company Number: MX-GLAXOSMITHKLINE-A0533835A

PATIENT
  Age: 37 Year
  Sex: Female
  Weight: 101.2 kg

DRUGS (4)
  1. AVANDIA [Suspect]
     Route: 048
     Dates: start: 20040427, end: 20041014
  2. CONTRACEPTION [Concomitant]
     Route: 048
  3. RANITIDINE [Concomitant]
     Indication: GASTRITIS
     Route: 048
     Dates: start: 20040811
  4. TRIMEBUTINE [Concomitant]
     Indication: GASTRITIS

REACTIONS (1)
  - ABORTION SPONTANEOUS [None]
